FAERS Safety Report 10242992 (Version 1)
Quarter: 2014Q2

REPORT INFORMATION
  Report Type: Spontaneous
  Country: US (occurrence: US)
  Receive Date: 20140618
  Receipt Date: 20140618
  Transmission Date: 20141212
  Serious: Yes (Other)
  Sender: FDA-Public Use
  Company Number: US-AMGEN INC.-USASP2014045151

PATIENT
  Age: 52 Year
  Sex: Female

DRUGS (2)
  1. ENBREL [Suspect]
     Indication: PSORIATIC ARTHROPATHY
     Dosage: 50 MG, 2 TIMES/WK
     Route: 065
     Dates: start: 20060101
  2. ENBREL [Suspect]
     Indication: PSORIASIS

REACTIONS (20)
  - Road traffic accident [Recovered/Resolved]
  - Emphysema [Not Recovered/Not Resolved]
  - Ankle operation [Recovered/Resolved]
  - Asthma [Not Recovered/Not Resolved]
  - Sjogren^s syndrome [Not Recovered/Not Resolved]
  - Hysterectomy [Recovered/Resolved]
  - Fatigue [Recovered/Resolved]
  - Dyspnoea [Recovered/Resolved]
  - Bone pain [Recovered/Resolved]
  - Tooth loss [Not Recovered/Not Resolved]
  - Tooth disorder [Recovered/Resolved]
  - Pain [Not Recovered/Not Resolved]
  - Back pain [Not Recovered/Not Resolved]
  - Arthralgia [Not Recovered/Not Resolved]
  - Oral disorder [Not Recovered/Not Resolved]
  - Dry eye [Not Recovered/Not Resolved]
  - Walking aid user [Not Recovered/Not Resolved]
  - Hypoacusis [Not Recovered/Not Resolved]
  - Skeletal injury [Recovered/Resolved]
  - Psoriasis [Not Recovered/Not Resolved]
